FAERS Safety Report 5336585-0 (Version None)
Quarter: 2007Q2

REPORT INFORMATION
  Report Type: 
  Country: None (occurrence: None)
  Receive Date: 20070523
  Receipt Date: 20070508
  Transmission Date: 20071010
  Serious: Yes (Death)
  Sender: FDA-Public Use
  Company Number: 070515-0000502

PATIENT
  Age: 19 Year
  Sex: Male

DRUGS (2)
  1. NEMBUTAL [Suspect]
     Indication: DRUG USE FOR UNKNOWN INDICATION
  2. PARAMETHOXYMETHAMPHETAMINE [Suspect]
     Indication: DRUG USE FOR UNKNOWN INDICATION

REACTIONS (5)
  - ACCIDENTAL OVERDOSE [None]
  - CARDIAC ARREST [None]
  - DRUG TOXICITY [None]
  - FALL [None]
  - RESPIRATORY DISTRESS [None]
